FAERS Safety Report 17646454 (Version 1)
Quarter: 2020Q2

REPORT INFORMATION
  Report Type: Spontaneous
  Country: FR (occurrence: FR)
  Receive Date: 20200408
  Receipt Date: 20200408
  Transmission Date: 20200713
  Serious: Yes (Other)
  Sender: FDA-Public Use
  Company Number: FR-ADVANZ PHARMA-202003002357

PATIENT

DRUGS (1)
  1. HYDROXYCHLOROQUINE SULFATE (AUTHORIZED GENERIC),PLAQUENIL [Suspect]
     Active Substance: HYDROXYCHLOROQUINE SULFATE
     Indication: POLYMYALGIA RHEUMATICA
     Dosage: 1 DOSAGE FORM, QD (FILM-COATED TABLET)
     Route: 065
     Dates: start: 2010

REACTIONS (3)
  - Prostatic adenoma [Unknown]
  - Arrhythmia [Unknown]
  - Off label use [Unknown]

NARRATIVE: CASE EVENT DATE: 2017
